FAERS Safety Report 13956722 (Version 1)
Quarter: 2017Q3

REPORT INFORMATION
  Report Type: Spontaneous
  Country: US (occurrence: US)
  Receive Date: 20170911
  Receipt Date: 20170911
  Transmission Date: 20171128
  Serious: Yes (Hospitalization)
  Sender: FDA-Public Use
  Company Number: US-ELI_LILLY_AND_COMPANY-US201708012803

PATIENT
  Sex: Male

DRUGS (2)
  1. METFORMIN [Concomitant]
     Active Substance: METFORMIN HYDROCHLORIDE
     Indication: PRODUCT USED FOR UNKNOWN INDICATION
     Dosage: 1 DF, EACH MORNING
     Route: 048
  2. HUMALOG [Suspect]
     Active Substance: INSULIN LISPRO
     Indication: PRODUCT USED FOR UNKNOWN INDICATION
     Dosage: 30 U, DAILY
     Route: 058

REACTIONS (8)
  - Type 2 diabetes mellitus [Unknown]
  - Diabetic foot [Unknown]
  - Anaemia of chronic disease [Unknown]
  - Hyperkalaemia [Unknown]
  - Heart rate abnormal [Unknown]
  - Osteomyelitis [Unknown]
  - Hyponatraemia [Unknown]
  - Blood pressure increased [Unknown]
